FAERS Safety Report 6122072-9 (Version None)
Quarter: 2009Q1

REPORT INFORMATION
  Report Type: 
  Country: None (occurrence: None)
  Receive Date: 20090316
  Receipt Date: 20090316
  Transmission Date: 20090719
  Serious: Yes (Other)
  Sender: FDA-Public Use
  Company Number: None

PATIENT
  Sex: Female
  Weight: 61.2356 kg

DRUGS (2)
  1. SERTRALINE [Suspect]
     Indication: ANXIETY DISORDER
     Dosage: 100 MG 1 TIME A DAY PO
     Route: 048
     Dates: start: 20060801, end: 20061001
  2. SERTRALINE [Suspect]
     Indication: OBSESSIVE-COMPULSIVE DISORDER
     Dosage: 100 MG 1 TIME A DAY PO
     Route: 048
     Dates: start: 20060801, end: 20061001

REACTIONS (5)
  - ANXIETY [None]
  - FEELING ABNORMAL [None]
  - LETHARGY [None]
  - SOMNOLENCE [None]
  - THERAPEUTIC RESPONSE UNEXPECTED WITH DRUG SUBSTITUTION [None]
